FAERS Safety Report 7341219-X (Version None)
Quarter: 2011Q1

REPORT INFORMATION
  Report Type: 
  Country: None (occurrence: None)
  Receive Date: 20110309
  Receipt Date: 20110228
  Transmission Date: 20110831
  Serious: Yes (Other)
  Sender: FDA-Public Use
  Company Number: US-BRISTOL-MYERS SQUIBB COMPANY-15574551

PATIENT
  Sex: Female

DRUGS (6)
  1. COUMADIN [Suspect]
     Indication: SYSTEMIC LUPUS ERYTHEMATOSUS
  2. COUMADIN [Suspect]
     Indication: ANTIPHOSPHOLIPID SYNDROME
  3. ASPIRIN [Suspect]
     Indication: ANTIPHOSPHOLIPID SYNDROME
  4. ASPIRIN [Suspect]
     Indication: SYSTEMIC LUPUS ERYTHEMATOSUS
  5. LOVENOX [Suspect]
     Indication: ANTIPHOSPHOLIPID SYNDROME
  6. LOVENOX [Suspect]
     Indication: SYSTEMIC LUPUS ERYTHEMATOSUS

REACTIONS (3)
  - UTERINE RUPTURE [None]
  - PREGNANCY [None]
  - DRUG EXPOSURE DURING PREGNANCY [None]
